FAERS Safety Report 5850465-3 (Version None)
Quarter: 2008Q3

REPORT INFORMATION
  Report Type: 
  Country: None (occurrence: None)
  Receive Date: 20080818
  Receipt Date: 20080807
  Transmission Date: 20090109
  Serious: Yes (Life-Threatening)
  Sender: FDA-Public Use
  Company Number: 92229

PATIENT
  Age: 79 Year
  Sex: Male

DRUGS (9)
  1. SIMVASTATIN [Suspect]
  2. FLUCONAZOLE [Suspect]
  3. THIAMINE HCL [Concomitant]
  4. FOLATE [Concomitant]
  5. INSULIN [Concomitant]
  6. LISINOPRIL [Concomitant]
  7. TERAZOSIN HCL [Concomitant]
  8. TOLTERODINE TARTRATE [Concomitant]
  9. GOSERELIN [Concomitant]

REACTIONS (5)
  - DYSPHAGIA [None]
  - HEMIPARESIS [None]
  - MASTICATION DISORDER [None]
  - RHABDOMYOLYSIS [None]
  - SPEECH DISORDER [None]
